FAERS Safety Report 21271223 (Version 1)
Quarter: 2022Q3

REPORT INFORMATION
  Report Type: Spontaneous
  Country: CN (occurrence: CN)
  Receive Date: 20220830
  Receipt Date: 20220830
  Transmission Date: 20221027
  Serious: Yes (Other)
  Sender: FDA-Public Use
  Company Number: CN-009507513-2208CHN009242

PATIENT
  Age: 58 Year
  Sex: Male

DRUGS (2)
  1. CILASTATIN SODIUM\IMIPENEM [Suspect]
     Active Substance: CILASTATIN SODIUM\IMIPENEM
     Indication: Infection
     Dosage: 1 G, TID
     Route: 041
     Dates: start: 20220802, end: 20220811
  2. SODIUM CHLORIDE [Concomitant]
     Active Substance: SODIUM CHLORIDE
     Indication: Infection
     Dosage: 100 ML, TID
     Route: 041
     Dates: start: 20220802, end: 20220811

REACTIONS (3)
  - Mania [Recovering/Resolving]
  - Hallucination [Recovering/Resolving]
  - Impulsive behaviour [Recovering/Resolving]

NARRATIVE: CASE EVENT DATE: 20220811
